FAERS Safety Report 23821653 (Version 2)
Quarter: 2024Q2

REPORT INFORMATION
  Report Type: Report from Study
  Country: CL (occurrence: CL)
  Receive Date: 20240506
  Receipt Date: 20240618
  Transmission Date: 20240716
  Serious: Yes (Disabling, Other)
  Sender: FDA-Public Use
  Company Number: CL-002147023-NVSC2023CL161416

PATIENT
  Age: 58 Year
  Sex: Female

DRUGS (12)
  1. SCEMBLIX [Suspect]
     Active Substance: ASCIMINIB HYDROCHLORIDE
     Indication: Chronic myeloid leukaemia
     Dosage: UNK, BID
     Route: 065
     Dates: start: 20230412
  2. SCEMBLIX [Suspect]
     Active Substance: ASCIMINIB HYDROCHLORIDE
     Indication: Acute lymphocytic leukaemia
     Dosage: 80 MG, QD (STRENGTH: 40 MG)
     Route: 048
     Dates: start: 20230412
  3. SCEMBLIX [Suspect]
     Active Substance: ASCIMINIB HYDROCHLORIDE
     Dosage: 40 MG, BID (TWICE A DAY)
     Route: 048
     Dates: start: 20230412
  4. SCEMBLIX [Suspect]
     Active Substance: ASCIMINIB HYDROCHLORIDE
     Dosage: 40 MG, BID (TWICE A DAY)
     Route: 048
     Dates: start: 20230412
  5. SCEMBLIX [Suspect]
     Active Substance: ASCIMINIB HYDROCHLORIDE
     Dosage: 40 MG, BID
     Route: 048
     Dates: start: 20230412
  6. SCEMBLIX [Suspect]
     Active Substance: ASCIMINIB HYDROCHLORIDE
     Dosage: 40 MG, BID
     Route: 048
     Dates: start: 20230412
  7. SCEMBLIX [Suspect]
     Active Substance: ASCIMINIB HYDROCHLORIDE
     Dosage: 400 MG, QD (12)
     Route: 065
  8. SCEMBLIX [Suspect]
     Active Substance: ASCIMINIB HYDROCHLORIDE
     Dosage: 40 MG, BID (TWICE A DAY)
     Route: 048
  9. SCEMBLIX [Suspect]
     Active Substance: ASCIMINIB HYDROCHLORIDE
     Dosage: 40 MG, BID (TWICE A DAY)
     Route: 048
  10. SCEMBLIX [Suspect]
     Active Substance: ASCIMINIB HYDROCHLORIDE
     Dosage: 40 MG, BID (TWICE A DAY)
     Route: 048
  11. SCEMBLIX [Suspect]
     Active Substance: ASCIMINIB HYDROCHLORIDE
     Dosage: 40 MG, BID
     Route: 048
  12. SCEMBLIX [Suspect]
     Active Substance: ASCIMINIB HYDROCHLORIDE
     Dosage: UNK
     Route: 065
     Dates: start: 20240221

REACTIONS (26)
  - Injection site haemorrhage [Recovered/Resolved]
  - Haemorrhage [Recovered/Resolved]
  - Foot fracture [Not Recovered/Not Resolved]
  - Feeling hot [Not Recovered/Not Resolved]
  - Philadelphia chromosome positive [Unknown]
  - Platelet count decreased [Not Recovered/Not Resolved]
  - Reflux gastritis [Unknown]
  - Oral mucosal blistering [Unknown]
  - Haematoma [Unknown]
  - Pain in extremity [Unknown]
  - Bone pain [Unknown]
  - Pain [Unknown]
  - Visual impairment [Unknown]
  - Contusion [Unknown]
  - Nasopharyngitis [Unknown]
  - Productive cough [Unknown]
  - Fatigue [Unknown]
  - Insomnia [Unknown]
  - Nocturia [Unknown]
  - Weight increased [Unknown]
  - Anxiety [Unknown]
  - Dysphonia [Unknown]
  - Vocal cord cyst [Unknown]
  - Inappropriate schedule of product administration [Unknown]
  - Wrong technique in product usage process [Unknown]
  - Product use in unapproved indication [Unknown]

NARRATIVE: CASE EVENT DATE: 20240221
